FAERS Safety Report 9658615 (Version 2)
Quarter: 2013Q4

REPORT INFORMATION
  Report Type: Spontaneous
  Country: US (occurrence: US)
  Receive Date: 20131030
  Receipt Date: 20131030
  Transmission Date: 20140711
  Serious: No
  Sender: FDA-Public Use
  Company Number: US-PURDUE-USA-2010-0055002

PATIENT
  Age: 67 Year
  Sex: Female
  Weight: 63.49 kg

DRUGS (3)
  1. OXYCONTIN (NDA 22-272) [Suspect]
     Indication: PAIN
     Dosage: 40 MG, Q12H
     Dates: start: 201009
  2. OXYCONTIN (NDA 22-272) [Suspect]
     Indication: SURGERY
     Dosage: 60 MG, Q12H
     Dates: start: 201009
  3. OXYCONTIN (NDA 22-272) [Suspect]
     Indication: CEREBROVASCULAR ACCIDENT

REACTIONS (4)
  - Dizziness [Recovered/Resolved]
  - Nausea [Recovered/Resolved]
  - Abdominal pain upper [Recovered/Resolved]
  - Blood pressure increased [Unknown]
